FAERS Safety Report 5914521-3 (Version None)
Quarter: 2008Q4

REPORT INFORMATION
  Report Type: 
  Country: None (occurrence: None)
  Receive Date: 20081008
  Receipt Date: 20080922
  Transmission Date: 20090506
  Serious: Yes (Death)
  Sender: FDA-Public Use
  Company Number: 8037680

PATIENT
  Age: 68 Year

DRUGS (1)
  1. PREDNISOLONE [Suspect]
     Dosage: 5 MG/D

REACTIONS (7)
  - ABDOMINAL PAIN [None]
  - CONVULSION [None]
  - METASTASES TO CENTRAL NERVOUS SYSTEM [None]
  - METASTASES TO LUNG [None]
  - METASTASES TO PERITONEUM [None]
  - METASTATIC NEOPLASM [None]
  - RENAL CANCER [None]
